FAERS Safety Report 5302062-6 (Version None)
Quarter: 2007Q2

REPORT INFORMATION
  Report Type: 
  Country: None (occurrence: None)
  Receive Date: 20070416
  Receipt Date: 20070416
  Transmission Date: 20071010
  Serious: Yes (Other)
  Sender: FDA-Public Use
  Company Number: None

PATIENT
  Age: 52 Year
  Sex: Female
  Weight: 72.5755 kg

DRUGS (1)
  1. ZOCOR [Suspect]
     Indication: BLOOD CHOLESTEROL INCREASED
     Dosage: 1 TAB  EVERY MORNING  PO
     Route: 048
     Dates: start: 20060517, end: 20060520

REACTIONS (2)
  - LOSS OF CONSCIOUSNESS [None]
  - PARALYSIS [None]
